FAERS Safety Report 18585816 (Version 1)
Quarter: 2020Q4

REPORT INFORMATION
  Report Type: Spontaneous
  Country: US (occurrence: US)
  Receive Date: 20201206
  Receipt Date: 20201206
  Transmission Date: 20210114
  Serious: Yes (Other)
  Sender: FDA-Public Use
  Company Number: None

PATIENT
  Age: 46 Year
  Sex: Female
  Weight: 69.75 kg

DRUGS (7)
  1. VICTOZA [Suspect]
     Active Substance: LIRAGLUTIDE
     Indication: WEIGHT
     Dosage: QUANTITY:1.2 INJECTION(S);?
     Route: 030
     Dates: start: 20201121, end: 20201202
  2. BOTOX [Concomitant]
     Active Substance: ONABOTULINUMTOXINA
  3. MULTIVITAMIN [Concomitant]
     Active Substance: VITAMINS
  4. EFFEXOR [Concomitant]
     Active Substance: VENLAFAXINE HYDROCHLORIDE
  5. ALEVE [Concomitant]
     Active Substance: NAPROXEN SODIUM
  6. FE [Concomitant]
     Active Substance: IRON
  7. MG [Concomitant]
     Active Substance: MAGNESIUM

REACTIONS (1)
  - Arthralgia [None]

NARRATIVE: CASE EVENT DATE: 20201201
